FAERS Safety Report 18263951 (Version 6)
Quarter: 2021Q2

REPORT INFORMATION
  Report Type: Spontaneous
  Country: US (occurrence: US)
  Receive Date: 20200914
  Receipt Date: 20210623
  Transmission Date: 20210717
  Serious: Yes (Other)
  Sender: FDA-Public Use
  Company Number: US-PFIZER INC-2020353793

PATIENT
  Age: 62 Year
  Sex: Female

DRUGS (1)
  1. XELJANZ XR [Suspect]
     Active Substance: TOFACITINIB CITRATE
     Dosage: 11 MG, ALTERNATE DAY (EVERY OTHER DAY)
     Dates: start: 202008

REACTIONS (13)
  - Joint injury [Unknown]
  - Seasonal allergy [Unknown]
  - Intentional product misuse [Unknown]
  - Multiple allergies [Unknown]
  - Oropharyngeal pain [Not Recovered/Not Resolved]
  - Arthralgia [Unknown]
  - Foot fracture [Unknown]
  - Sinus disorder [Unknown]
  - Cough [Unknown]
  - Joint swelling [Unknown]
  - Rhinorrhoea [Unknown]
  - Headache [Unknown]
  - Sinusitis [Not Recovered/Not Resolved]

NARRATIVE: CASE EVENT DATE: 2020
